FAERS Safety Report 18459553 (Version 1)
Quarter: 2020Q4

REPORT INFORMATION
  Report Type: Spontaneous
  Country: US (occurrence: US)
  Receive Date: 20201103
  Receipt Date: 20201103
  Transmission Date: 20210114
  Serious: No
  Sender: FDA-Public Use
  Company Number: US-PFIZER INC-2020421405

PATIENT
  Age: 68 Year
  Sex: Male
  Weight: 117.93 kg

DRUGS (2)
  1. KEYTRUDA [Concomitant]
     Active Substance: PEMBROLIZUMAB
     Dosage: UNK
  2. INLYTA [Suspect]
     Active Substance: AXITINIB
     Indication: RENAL CANCER
     Dosage: 5 MG, 2X/DAY (5 MG TWICE DAILY BY MOUTH)
     Route: 048
     Dates: start: 20200901

REACTIONS (3)
  - Rash [Recovering/Resolving]
  - Dry mouth [Unknown]
  - Dysphagia [Unknown]
